FAERS Safety Report 18537334 (Version 3)
Quarter: 2020Q4

REPORT INFORMATION
  Report Type: Spontaneous
  Country: ES (occurrence: ES)
  Receive Date: 20201124
  Receipt Date: 20201228
  Transmission Date: 20210114
  Serious: Yes (Death, Other)
  Sender: FDA-Public Use
  Company Number: ES-AUROBINDO-AUR-APL-2020-057276

PATIENT
  Age: 46 Year
  Sex: Female

DRUGS (21)
  1. PALBOCICLIB [Suspect]
     Active Substance: PALBOCICLIB
     Indication: PRODUCT USED FOR UNKNOWN INDICATION
     Dosage: UNK
     Route: 048
  2. PALBOCICLIB [Suspect]
     Active Substance: PALBOCICLIB
     Dosage: UNK UNK, CYCLIC (14TH CYCLE)
     Route: 048
     Dates: start: 20190920
  3. FULVESTRANT. [Suspect]
     Active Substance: FULVESTRANT
     Dosage: UNK UNK, CYCLIC
     Route: 030
     Dates: start: 20190510
  4. TAXOL [Concomitant]
     Active Substance: PACLITAXEL
     Indication: PRODUCT USED FOR UNKNOWN INDICATION
     Dosage: UNK, CYCLE DAY +1
     Route: 065
     Dates: start: 20191018
  5. METFORMIN [Concomitant]
     Active Substance: METFORMIN HYDROCHLORIDE
     Indication: PRODUCT USED FOR UNKNOWN INDICATION
     Dosage: UNK
     Route: 065
  6. TAXOL [Concomitant]
     Active Substance: PACLITAXEL
     Dosage: UNK, CYCLICAL
     Route: 065
     Dates: start: 20200221
  7. PALBOCICLIB [Suspect]
     Active Substance: PALBOCICLIB
     Dosage: UNK UNK, CYCLIC (12TH CYCLE)
     Route: 048
     Dates: start: 20190705
  8. TAXOL [Concomitant]
     Active Substance: PACLITAXEL
     Dosage: UNK, CYCLE DAY +15
     Route: 065
     Dates: start: 20191227
  9. PALBOCICLIB [Suspect]
     Active Substance: PALBOCICLIB
     Dosage: UNK UNK, CYCLIC (7TH CYCLE)
     Route: 048
     Dates: start: 20190215
  10. METFORMIN [Concomitant]
     Active Substance: METFORMIN HYDROCHLORIDE
     Dosage: UNK
     Route: 065
     Dates: start: 201904
  11. TAXOL [Concomitant]
     Active Substance: PACLITAXEL
     Dosage: UNK, CYCLE DAY +15
     Route: 065
     Dates: start: 20191118
  12. PALBOCICLIB [Suspect]
     Active Substance: PALBOCICLIB
     Dosage: UNK UNK, CYCLIC (4TH CYCLE)
     Route: 048
     Dates: start: 20181123
  13. FULVESTRANT. [Suspect]
     Active Substance: FULVESTRANT
     Dosage: UNK UNK, CYCLIC (10TH CYCLE)
     Route: 030
     Dates: start: 20190705
  14. FULVESTRANT. [Suspect]
     Active Substance: FULVESTRANT
     Dosage: UNK UNK, CYCLIC (12TH CYCLE)
     Route: 030
     Dates: start: 20190920
  15. PALBOCICLIB [Suspect]
     Active Substance: PALBOCICLIB
     Dosage: UNK UNK, CYCLIC (10TH CYCLE)
     Route: 048
     Dates: start: 20190510
  16. FULVESTRANT. [Suspect]
     Active Substance: FULVESTRANT
     Dosage: UNK UNK, CYCLIC (7TH CYCLE)
     Route: 030
     Dates: start: 20190215
  17. ZOLEDRONIC ACID [Suspect]
     Active Substance: ZOLEDRONIC ACID
     Indication: PRODUCT USED FOR UNKNOWN INDICATION
     Dosage: UNK
     Route: 065
     Dates: start: 20180831
  18. FULVESTRANT. [Suspect]
     Active Substance: FULVESTRANT
     Indication: PRODUCT USED FOR UNKNOWN INDICATION
     Dosage: UNK, CYCLIC (1ST CYCLE)
     Route: 030
     Dates: start: 20180831
  19. FULVESTRANT. [Suspect]
     Active Substance: FULVESTRANT
     Dosage: UNK UNK, CYCLIC (4TH CYCLE)
     Route: 030
     Dates: start: 20181123
  20. PALBOCICLIB [Suspect]
     Active Substance: PALBOCICLIB
     Dosage: UNK, CYCLIC (1ST CYCLE)
     Route: 048
     Dates: start: 20180831
  21. FULVESTRANT. [Suspect]
     Active Substance: FULVESTRANT
     Dosage: UNK, CYCLIC (14TH CYCLE)
     Route: 030
     Dates: start: 20190920

REACTIONS (12)
  - Metastases to retroperitoneum [Unknown]
  - Anaemia [Unknown]
  - Metastases to liver [Unknown]
  - Blood glucose increased [Unknown]
  - Death [Fatal]
  - Metastases to lung [Unknown]
  - Seizure [Unknown]
  - Malignant neoplasm progression [Unknown]
  - Skin toxicity [Unknown]
  - Asthenia [Unknown]
  - Metastases to kidney [Unknown]
  - Neoplasm progression [Unknown]

NARRATIVE: CASE EVENT DATE: 20190215
